FAERS Safety Report 6591537-8 (Version None)
Quarter: 2010Q1

REPORT INFORMATION
  Report Type: 
  Country: None (occurrence: None)
  Receive Date: 20100220
  Receipt Date: 20100205
  Transmission Date: 20100710
  Serious: No
  Sender: FDA-Public Use
  Company Number: US-JNJFOC-20100203994

PATIENT
  Sex: Female
  Weight: 63.5 kg

DRUGS (11)
  1. FENTANYL CITRATE [Suspect]
     Indication: ARTHRITIS
     Route: 062
  2. FENTANYL CITRATE [Suspect]
     Indication: SPINAL COLUMN STENOSIS
     Route: 062
  3. FENTANYL CITRATE [Suspect]
     Indication: BACK PAIN
     Route: 062
  4. FENTANYL CITRATE [Suspect]
     Route: 062
  5. FENTANYL CITRATE [Suspect]
     Route: 062
  6. FENTANYL CITRATE [Suspect]
     Route: 062
  7. FLEXERIL [Concomitant]
     Indication: PAIN
     Route: 048
  8. FLEXERIL [Concomitant]
     Indication: RELAXATION THERAPY
     Route: 048
  9. XANAX [Concomitant]
     Indication: PAIN
     Route: 048
  10. XANAX [Concomitant]
     Indication: RELAXATION THERAPY
     Route: 048
  11. PERCOCET [Concomitant]
     Indication: PAIN
     Dosage: 7.5-325 MG
     Route: 048

REACTIONS (6)
  - HEAD TITUBATION [None]
  - HYPERSOMNIA [None]
  - INADEQUATE ANALGESIA [None]
  - NAUSEA [None]
  - VOMITING [None]
  - WRONG TECHNIQUE IN DRUG USAGE PROCESS [None]
